FAERS Safety Report 21972308 (Version 1)
Quarter: 2023Q1

REPORT INFORMATION
  Report Type: Spontaneous
  Country: US (occurrence: None)
  Receive Date: 20230207
  Receipt Date: 20230207
  Transmission Date: 20230418
  Serious: Yes (Life-Threatening, Disabling, Other)
  Sender: FDA-Public Use
  Company Number: None

PATIENT
  Age: 40 Year
  Sex: Female
  Weight: 120.15 kg

DRUGS (8)
  1. VENLAFAXINE HYDROCHLORIDE [Suspect]
     Active Substance: VENLAFAXINE HYDROCHLORIDE
     Indication: Anxiety
     Dosage: 1 CAPSULE DAILY ORAL
     Route: 048
     Dates: start: 20230111, end: 20230206
  2. VENLAFAXINE HYDROCHLORIDE [Suspect]
     Active Substance: VENLAFAXINE HYDROCHLORIDE
     Indication: Depression
  3. VENLAFAXINE HYDROCHLORIDE [Suspect]
     Active Substance: VENLAFAXINE HYDROCHLORIDE
     Indication: Panic disorder
  4. VENLAFAXINE HYDROCHLORIDE [Concomitant]
     Active Substance: VENLAFAXINE HYDROCHLORIDE
  5. amlodopine 2.5mg [Concomitant]
  6. DEVICE [Concomitant]
     Active Substance: DEVICE
  7. IRON [Concomitant]
  8. VITAMIN D [Concomitant]
     Active Substance: VITAMIN D NOS

REACTIONS (17)
  - Product substitution issue [None]
  - Serotonin syndrome [None]
  - Tremor [None]
  - Dysphagia [None]
  - Decreased appetite [None]
  - Hypertension [None]
  - Anxiety [None]
  - Cough [None]
  - Nonspecific reaction [None]
  - Dyspnoea [None]
  - Lethargy [None]
  - Headache [None]
  - Feeling cold [None]
  - Seizure [None]
  - Depression [None]
  - Panic reaction [None]
  - Panic attack [None]

NARRATIVE: CASE EVENT DATE: 20230205
